FAERS Safety Report 10411290 (Version 1)
Quarter: 2014Q3

REPORT INFORMATION
  Report Type: Other
  Country: DE (occurrence: DE)
  Receive Date: 20140826
  Receipt Date: 20140826
  Transmission Date: 20150326
  Serious: Yes (Congenital Anomaly)
  Sender: FDA-Public Use
  Company Number: DE-MYLAN-2014M1001784

PATIENT

DRUGS (4)
  1. FLUOXETINE HYDROCHLORIDE. [Suspect]
     Active Substance: FLUOXETINE HYDROCHLORIDE
     Indication: DEPRESSION
     Dosage: 20 [MG/D ]
     Route: 064
  2. L-THYROX [Concomitant]
     Indication: HYPOTHYROIDISM
     Dosage: 75 ?G, QD
     Route: 064
     Dates: start: 20130123, end: 20131104
  3. VOMEX A [Concomitant]
     Active Substance: DIMENHYDRINATE
     Indication: VOMITING IN PREGNANCY
     Dosage: UNTIL WEEK 12: 2-3 TIMES
     Route: 064
  4. FOLS?URE [Concomitant]
     Indication: PROPHYLAXIS OF NEURAL TUBE DEFECT
     Dosage: UNK
     Route: 064

REACTIONS (3)
  - Foetal exposure during pregnancy [Unknown]
  - Ventricular septal defect [Not Recovered/Not Resolved]
  - Atrial septal defect [Not Recovered/Not Resolved]

NARRATIVE: CASE EVENT DATE: 20131104
